FAERS Safety Report 8530411-4 (Version None)
Quarter: 2012Q3

REPORT INFORMATION
  Report Type: 
  Country: None (occurrence: None)
  Receive Date: 20120711
  Receipt Date: 20120626
  Transmission Date: 20120928
  Serious: Yes (Hospitalization)
  Sender: FDA-Public Use
  Company Number: 2012SGN00292

PATIENT
  Sex: Female

DRUGS (1)
  1. ADCETRIS [Suspect]
     Indication: HODGKIN'S DISEASE

REACTIONS (1)
  - OXYGEN SATURATION DECREASED [None]
